FAERS Safety Report 24296789 (Version 1)
Quarter: 2024Q3

REPORT INFORMATION
  Report Type: Spontaneous
  Country: US (occurrence: US)
  Receive Date: 20240909
  Receipt Date: 20240909
  Transmission Date: 20241016
  Serious: No
  Sender: ELI LILLY AND CO
  Company Number: US-ELI_LILLY_AND_COMPANY-US202409003707

PATIENT
  Age: 51 Year
  Sex: Female

DRUGS (2)
  1. VERZENIO [Suspect]
     Active Substance: ABEMACICLIB
     Indication: Breast cancer female
     Dosage: 100 MG, BID
     Route: 048
     Dates: start: 20240709
  2. COLESTIPOL [Concomitant]
     Active Substance: COLESTIPOL
     Indication: Product used for unknown indication

REACTIONS (4)
  - Sleep disorder due to general medical condition, insomnia type [Unknown]
  - Joint stiffness [Unknown]
  - Muscle tightness [Unknown]
  - Diarrhoea [Unknown]
